FAERS Safety Report 14685492 (Version 1)
Quarter: 2018Q1

REPORT INFORMATION
  Report Type: Spontaneous
  Country: UM (occurrence: SE)
  Receive Date: 20180327
  Receipt Date: 20180327
  Transmission Date: 20180509
  Serious: Yes (Death)
  Sender: FDA-Public Use
  Company Number: UM-ABBVIE-18K-295-2301577-00

PATIENT
  Sex: Female

DRUGS (1)
  1. HUMIRA [Suspect]
     Active Substance: ADALIMUMAB
     Indication: PSORIASIS
     Route: 058

REACTIONS (5)
  - Sepsis [Fatal]
  - Liver disorder [Fatal]
  - Renal failure [Fatal]
  - Intestinal perforation [Fatal]
  - Asthenia [Fatal]
